FAERS Safety Report 6549191-7 (Version None)
Quarter: 2010Q1

REPORT INFORMATION
  Report Type: 
  Country: None (occurrence: None)
  Receive Date: 20100119
  Receipt Date: 20100112
  Transmission Date: 20100710
  Serious: Yes (Hospitalization)
  Sender: FDA-Public Use
  Company Number: TCI2009A05219

PATIENT
  Age: 8 Decade
  Sex: Female

DRUGS (9)
  1. LANSOPRAZOLE [Suspect]
     Indication: REFLUX OESOPHAGITIS
     Dosage: 15 MG (15 MG, 1 IN 1 D), PER ORAL
     Route: 048
     Dates: start: 20070101, end: 20090216
  2. LASIX [Concomitant]
  3. ALDACTONE [Concomitant]
  4. POLYFUL (POLYCARBOPHIL CALCIUM) [Concomitant]
  5. DEPAS (ETIZOLAM) [Concomitant]
  6. BERIZYM (ENZYMES NOS) [Concomitant]
  7. LAC B (LACTOBACILLUS BIFIDUS, LYOPHILIZED) [Concomitant]
  8. PIROAN (DIPYRIDAMOLE) [Concomitant]
  9. PERINSYL (PERINDOPRIL ERBUMINE) [Concomitant]

REACTIONS (6)
  - COLITIS COLLAGENOUS [None]
  - DIARRHOEA [None]
  - ENTERITIS INFECTIOUS [None]
  - GENERALISED OEDEMA [None]
  - HYPOALBUMINAEMIA [None]
  - LARGE INTESTINAL ULCER [None]
